FAERS Safety Report 9176287 (Version 1)
Quarter: 2013Q1

REPORT INFORMATION
  Report Type: Spontaneous
  Country: US (occurrence: US)
  Receive Date: 20130321
  Receipt Date: 20130321
  Transmission Date: 20140127
  Serious: No
  Sender: FDA-Public Use
  Company Number: US-009507513-1303USA007626

PATIENT
  Age: 58 Year
  Sex: Male

DRUGS (3)
  1. SAPHRIS [Suspect]
     Indication: BIPOLAR DISORDER
     Dosage: 5 MG, QD
     Route: 048
     Dates: start: 2013
  2. SAPHRIS [Suspect]
     Indication: SCHIZOPHRENIA
  3. FLURAZEPAM [Concomitant]

REACTIONS (2)
  - Muscular weakness [Unknown]
  - Underdose [Unknown]
